FAERS Safety Report 7800557-4 (Version None)
Quarter: 2011Q4

REPORT INFORMATION
  Report Type: 
  Country: None (occurrence: None)
  Receive Date: 20111006
  Receipt Date: 20110930
  Transmission Date: 20120403
  Serious: Yes (Hospitalization, Other)
  Sender: FDA-Public Use
  Company Number: US-PFIZER INC-2011187837

PATIENT
  Sex: Female
  Weight: 64 kg

DRUGS (9)
  1. METOPROLOL [Concomitant]
     Indication: PROPHYLAXIS
     Dosage: UNK
  2. NITROGLYCERIN [Suspect]
     Indication: ANGINA PECTORIS
     Dosage: UNK
  3. ACETYLSALICYLIC ACID [Concomitant]
     Indication: ANTICOAGULANT THERAPY
     Dosage: UNK
  4. DILAUDID [Concomitant]
     Indication: PAIN
     Dosage: 4 MG, AS NEEDED
  5. TRAZODONE [Concomitant]
     Indication: SLEEP DISORDER
     Dosage: 50 MG, UNK
     Dates: start: 20090101
  6. OXYCODONE [Concomitant]
     Indication: PAIN
     Dosage: 10 MG EVERY 4 TO 6 HOURS AS NEEDED
  7. CHANTIX [Suspect]
     Indication: SMOKING CESSATION THERAPY
     Dosage: 0.5 MG, 1X/DAY
     Route: 048
     Dates: start: 20110808, end: 20110801
  8. VALIUM [Concomitant]
     Indication: SLEEP DISORDER
     Dosage: 10 MG, 3X/DAY
     Dates: start: 20090101
  9. CHANTIX [Suspect]
     Dosage: 0.5 MG, 2X/DAY
     Route: 048
     Dates: start: 20110801, end: 20110812

REACTIONS (5)
  - DIZZINESS [None]
  - DYSPNOEA [None]
  - ANGINA PECTORIS [None]
  - HEART RATE DECREASED [None]
  - AMNESIA [None]
